FAERS Safety Report 8889384 (Version 1)
Quarter: 2012Q4

REPORT INFORMATION
  Report Type: Spontaneous
  Country: US (occurrence: None)
  Receive Date: 20121102
  Receipt Date: 20121102
  Transmission Date: 20130627
  Serious: No
  Sender: FDA-Public Use
  Company Number: None

PATIENT
  Sex: Female
  Weight: 150.6 kg

DRUGS (1)
  1. LOSARTAN 100UG [Suspect]
     Indication: HYPERTENSION
     Route: 048
     Dates: start: 2006

REACTIONS (2)
  - Headache [None]
  - Nausea [None]
